FAERS Safety Report 7597774-8 (Version None)
Quarter: 2011Q3

REPORT INFORMATION
  Report Type: 
  Country: None (occurrence: None)
  Receive Date: 20110708
  Receipt Date: 20110705
  Transmission Date: 20111222
  Serious: Yes (Life-Threatening)
  Sender: FDA-Public Use
  Company Number: DE-GLAXOSMITHKLINE-D0071709A

PATIENT
  Sex: Male

DRUGS (6)
  1. NOVALGIN [Concomitant]
     Route: 065
  2. SULFONYLUREA [Concomitant]
     Route: 065
  3. METFORMIN HCL [Concomitant]
     Route: 065
  4. CITALOPRAM HYDROBROMIDE [Concomitant]
     Indication: DEPRESSION
     Route: 065
  5. MIRTAZAPINE [Concomitant]
     Indication: DEPRESSION
     Route: 065
  6. AVANDAMET [Suspect]
     Indication: TYPE 2 DIABETES MELLITUS
     Dosage: 1004MG TWICE PER DAY
     Route: 048
     Dates: start: 20080619, end: 20100927

REACTIONS (6)
  - NAUSEA [None]
  - ABDOMINAL PAIN UPPER [None]
  - IMPAIRED HEALING [None]
  - UPPER LIMB FRACTURE [None]
  - ABDOMINAL PAIN [None]
  - HEPATIC CIRRHOSIS [None]
